FAERS Safety Report 19881772 (Version 4)
Quarter: 2021Q4

REPORT INFORMATION
  Report Type: Report from Study
  Country: US (occurrence: US)
  Receive Date: 20210924
  Receipt Date: 20211103
  Transmission Date: 20220304
  Serious: Yes (Other)
  Sender: FDA-Public Use
  Company Number: US-JAZZ-2021-US-013546

PATIENT
  Age: 43 Year
  Sex: Female

DRUGS (3)
  1. SOLRIAMFETOL [Suspect]
     Active Substance: SOLRIAMFETOL
     Indication: Poor quality sleep
     Dosage: 75 MILLIGRAM
     Route: 048
     Dates: start: 20210624, end: 2021
  2. SOLRIAMFETOL [Suspect]
     Active Substance: SOLRIAMFETOL
     Indication: Sleep apnoea syndrome
     Dosage: 37.5 MILLIGRAM
     Route: 048
     Dates: start: 20210714, end: 20210716
  3. SOLRIAMFETOL [Suspect]
     Active Substance: SOLRIAMFETOL
     Indication: Somnolence
     Dosage: 75 MILLIGRAM
     Route: 048
     Dates: start: 2021

REACTIONS (4)
  - Abortion spontaneous [Recovered/Resolved]
  - Exposure during pregnancy [Unknown]
  - Headache [Recovered/Resolved]
  - Off label use [Unknown]

NARRATIVE: CASE EVENT DATE: 20210701
